FAERS Safety Report 5704150-9 (Version None)
Quarter: 2008Q2

REPORT INFORMATION
  Report Type: 
  Country: None (occurrence: None)
  Receive Date: 20080414
  Receipt Date: 20080414
  Transmission Date: 20081010
  Serious: Yes (Death, Life-Threatening, Hospitalization, Other)
  Sender: FDA-Public Use
  Company Number: None

PATIENT
  Sex: Male
  Weight: 68.0396 kg

DRUGS (3)
  1. HEPARIN LOCK-FLUSH [Suspect]
  2. ZOMETA [Suspect]
     Indication: BONE FORMATION INCREASED
     Dates: start: 20071201, end: 20071201
  3. ZOMETA [Suspect]
     Indication: MULTIPLE MYELOMA
     Dates: start: 20071201, end: 20071201

REACTIONS (1)
  - RENAL FAILURE [None]
